FAERS Safety Report 25919653 (Version 1)
Quarter: 2025Q4

REPORT INFORMATION
  Report Type: Spontaneous
  Country: US (occurrence: US)
  Receive Date: 20251014
  Receipt Date: 20251014
  Transmission Date: 20260117
  Serious: No
  Sender: BRISTOL-MYERS SQUIBB COMPANY
  Company Number: US-BRISTOL-MYERS SQUIBB COMPANY-2025-139693

PATIENT
  Age: 60 Year
  Sex: Female

DRUGS (2)
  1. ELIQUIS [Suspect]
     Active Substance: APIXABAN
     Indication: Atrial fibrillation
     Dosage: PRESCRIBED DOSE
  2. ELIQUIS [Suspect]
     Active Substance: APIXABAN
     Dosage: LOWER DOSE

REACTIONS (2)
  - Epistaxis [Unknown]
  - Mouth haemorrhage [Unknown]
